FAERS Safety Report 23674552 (Version 1)
Quarter: 2024Q1

REPORT INFORMATION
  Report Type: Spontaneous
  Country: ES (occurrence: ES)
  Receive Date: 20240326
  Receipt Date: 20240326
  Transmission Date: 20240410
  Serious: Yes (Hospitalization, Other)
  Sender: FDA-Public Use
  Company Number: ES-SUN PHARMACEUTICAL INDUSTRIES LTD-2024R1-437761

PATIENT
  Age: 74 Year
  Sex: Female

DRUGS (2)
  1. DESVENLAFAXINE [Interacting]
     Active Substance: DESVENLAFAXINE
     Indication: Major depression
     Dosage: 150 MILLIGRAM, DAILY
     Route: 065
  2. VORTIOXETINE [Interacting]
     Active Substance: VORTIOXETINE
     Indication: Major depression
     Dosage: 20 MILLIGRAM, DAILY
     Route: 065

REACTIONS (8)
  - Drug ineffective [Unknown]
  - Hyperhidrosis [Unknown]
  - Dyspnoea [Unknown]
  - Blood pressure increased [Unknown]
  - Tachycardia [Unknown]
  - Normetanephrine urine increased [Unknown]
  - Drug interaction [Unknown]
  - Off label use [Unknown]
